FAERS Safety Report 25226145 (Version 1)
Quarter: 2025Q2

REPORT INFORMATION
  Report Type: Spontaneous
  Country: US (occurrence: None)
  Receive Date: 20250422
  Receipt Date: 20250422
  Transmission Date: 20250717
  Serious: No
  Sender: FDA-CTU
  Company Number: None

PATIENT
  Age: 78 Year
  Sex: Male
  Weight: 66.6 kg

DRUGS (7)
  1. FINASTERIDE\MINOXIDIL\TRETINOIN [Suspect]
     Active Substance: FINASTERIDE\MINOXIDIL\TRETINOIN
     Indication: Androgenetic alopecia
     Dosage: 1 0.5 ML AT BEDTIME TOPICAL
     Route: 061
     Dates: start: 20250311, end: 20250402
  2. TRAZODONE [Concomitant]
     Active Substance: TRAZODONE HYDROCHLORIDE
  3. CLONAZEPAM [Concomitant]
     Active Substance: CLONAZEPAM
  4. NAPROXEN [Concomitant]
     Active Substance: NAPROXEN
  5. Senior Multivitamin [Concomitant]
  6. ZINC [Concomitant]
     Active Substance: ZINC
  7. VITAMIN B12 [Concomitant]
     Active Substance: CYANOCOBALAMIN

REACTIONS (5)
  - Testicular pain [None]
  - Anorgasmia [None]
  - Loss of libido [None]
  - Urinary incontinence [None]
  - Therapy cessation [None]

NARRATIVE: CASE EVENT DATE: 20250402
